FAERS Safety Report 7372634-6 (Version None)
Quarter: 2011Q1

REPORT INFORMATION
  Report Type: 
  Country: None (occurrence: None)
  Receive Date: 20110324
  Receipt Date: 20110316
  Transmission Date: 20110831
  Serious: Yes (Hospitalization)
  Sender: FDA-Public Use
  Company Number: FR-B.I. PHARMACEUTICALS,INC./RIDGEFIELD-2011-FF-00262FF

PATIENT
  Sex: Female

DRUGS (3)
  1. SIFROL [Suspect]
     Indication: RESTLESS LEGS SYNDROME
     Route: 048
     Dates: start: 20081101
  2. ENDOTELON [Concomitant]
  3. LYRICA [Suspect]
     Indication: RESTLESS LEGS SYNDROME
     Dosage: 150 MG
     Route: 048
     Dates: start: 20080901

REACTIONS (7)
  - SOMNOLENCE [None]
  - HEADACHE [None]
  - MALAISE [None]
  - LOSS OF CONSCIOUSNESS [None]
  - VOMITING [None]
  - CONFUSIONAL STATE [None]
  - AMNESIA [None]
